FAERS Safety Report 7576417-3 (Version None)
Quarter: 2011Q2

REPORT INFORMATION
  Report Type: 
  Country: None (occurrence: None)
  Receive Date: 20110628
  Receipt Date: 20110616
  Transmission Date: 20111010
  Serious: Yes (Death, Other)
  Sender: FDA-Public Use
  Company Number: US-ELI_LILLY_AND_COMPANY-US201105004644

PATIENT
  Sex: Female

DRUGS (3)
  1. FORTEO [Suspect]
     Indication: OSTEOPOROSIS
     Dosage: 20 UG, QD
     Route: 065
     Dates: start: 20051129, end: 20070523
  2. FOSAMAX [Concomitant]
     Dosage: UNK, UNKNOWN
     Route: 065
  3. CALCIUM AND ERGOCALCIFEROL [Concomitant]
     Dosage: 500 IU, OTHER
     Route: 065

REACTIONS (8)
  - VITAMIN D INCREASED [None]
  - SPINAL COMPRESSION FRACTURE [None]
  - EXPIRED DRUG ADMINISTERED [None]
  - CREST SYNDROME [None]
  - PULMONARY HYPERTENSION [None]
  - OSTEOPOROSIS [None]
  - BODY HEIGHT DECREASED [None]
  - PAIN [None]
